FAERS Safety Report 7774547-4 (Version None)
Quarter: 2011Q3

REPORT INFORMATION
  Report Type: 
  Country: None (occurrence: None)
  Receive Date: 20110923
  Receipt Date: 20110923
  Transmission Date: 20111222
  Serious: Yes (Other)
  Sender: FDA-Public Use
  Company Number: None

PATIENT
  Age: 37 Year
  Sex: Female
  Weight: 78.471 kg

DRUGS (1)
  1. FLUCONAZOLE [Suspect]
     Indication: VAGINAL INFECTION
     Dosage: 150 MGS.
     Route: 048
     Dates: start: 20110919, end: 20110920

REACTIONS (6)
  - HEART RATE IRREGULAR [None]
  - TREMOR [None]
  - FEAR [None]
  - DIZZINESS [None]
  - SWELLING FACE [None]
  - DYSPNOEA [None]
